FAERS Safety Report 23925273 (Version 4)
Quarter: 2024Q3

REPORT INFORMATION
  Report Type: Report from Study
  Country: DE (occurrence: DE)
  Receive Date: 20240531
  Receipt Date: 20240718
  Transmission Date: 20241016
  Serious: Yes (Death, Hospitalization, Other)
  Sender: INSMED
  Company Number: DE-INSMED, INC.-2024-02130-DE

PATIENT
  Age: 71 Year
  Sex: Male

DRUGS (1)
  1. ARIKAYCE [Suspect]
     Active Substance: AMIKACIN
     Indication: Atypical mycobacterial infection
     Dosage: 590 MILLIGRAM, QD
     Route: 055
     Dates: start: 20240521, end: 202406

REACTIONS (5)
  - Arrhythmia [Fatal]
  - Angina pectoris [Recovered/Resolved]
  - Heart rate increased [Not Recovered/Not Resolved]
  - Weight decreased [Not Recovered/Not Resolved]
  - Dyspnoea [Not Recovered/Not Resolved]

NARRATIVE: CASE EVENT DATE: 20240101
